FAERS Safety Report 9304855 (Version 1)
Quarter: 2013Q2

REPORT INFORMATION
  Report Type: Spontaneous
  Country: US (occurrence: None)
  Receive Date: 20130521
  Receipt Date: 20130521
  Transmission Date: 20140414
  Serious: No
  Sender: FDA-Public Use
  Company Number: None

PATIENT
  Age: 15 Year
  Sex: Female

DRUGS (2)
  1. LORATADINE AND PSEUDOEPHEDRINE SULFATE [Suspect]
     Indication: NASAL CONGESTION
  2. LORATADINE AND PSEUDOEPHEDRINE SULFATE [Suspect]
     Indication: MULTIPLE ALLERGIES

REACTIONS (2)
  - Acne [None]
  - Hypersensitivity [None]
